FAERS Safety Report 6185585-X (Version None)
Quarter: 2009Q2

REPORT INFORMATION
  Report Type: 
  Country: None (occurrence: None)
  Receive Date: 20090511
  Receipt Date: 20090430
  Transmission Date: 20091009
  Serious: Yes (Hospitalization)
  Sender: FDA-Public Use
  Company Number: FR-PFIZER INC-2009205735

PATIENT
  Age: 50 Year

DRUGS (8)
  1. ALDACTONE [Suspect]
     Dosage: 25 MG, UNK
     Route: 048
  2. METOPROLOL [Suspect]
     Dosage: 100 MG, 1X/DAY
     Route: 048
  3. RAMIPRIL [Suspect]
     Dosage: 10 MG, 1X/DAY
     Route: 048
  4. LASIX [Suspect]
     Dosage: 40 MG, UNK
     Route: 048
  5. CORDARONE [Concomitant]
  6. TAHOR [Concomitant]
  7. OMACOR [Concomitant]
  8. PREVISCAN [Concomitant]

REACTIONS (2)
  - BLOOD PRESSURE DECREASED [None]
  - SINUS BRADYCARDIA [None]
